FAERS Safety Report 19686830 (Version 1)
Quarter: 2021Q3

REPORT INFORMATION
  Report Type: Spontaneous
  Country: IT (occurrence: IT)
  Receive Date: 20210811
  Receipt Date: 20210811
  Transmission Date: 20211014
  Serious: Yes (Death, Other)
  Sender: FDA-Public Use
  Company Number: IT-MYLANLABS-2021M1049375

PATIENT
  Age: 43 Year

DRUGS (5)
  1. MAGNESIUM [Concomitant]
     Active Substance: MAGNESIUM
     Dosage: 3 MEQ, CYCLIC (ON DAY 1,2,3, REPEATED AFTER 28 DAYS)
  2. CISPLATIN. [Suspect]
     Active Substance: CISPLATIN
     Indication: SQUAMOUS CELL CARCINOMA OF HEAD AND NECK
     Dosage: 60 MG/M2, CYCLIC (ON DAY 1,2,3, REPEATED AFTER 28 DAYS)
  3. METOCLOPRAMIDE. [Concomitant]
     Active Substance: METOCLOPRAMIDE
     Dosage: 1 MG/KG, CYCLIC (ON DAY 1,2,3, REPEATED AFTER 28 DAYS)
  4. FUROSEMIDE. [Concomitant]
     Active Substance: FUROSEMIDE
     Dosage: 20 MG, CYCLIC (ON DAY 1,2,3, REPEATED AFTER 28 DAYS)
     Route: 040
  5. KCL [Concomitant]
     Active Substance: POTASSIUM CHLORIDE
     Dosage: 5 MEQ, CYCLIC (ON DAY 1,2,3, REPEATED AFTER 28 DAYS)

REACTIONS (4)
  - Gastrointestinal toxicity [Unknown]
  - Haematotoxicity [Unknown]
  - Nephropathy toxic [Unknown]
  - Acute kidney injury [Fatal]
